FAERS Safety Report 4577591-3 (Version None)
Quarter: 2005Q1

REPORT INFORMATION
  Report Type: 
  Country: None (occurrence: None)
  Receive Date: 20050208
  Receipt Date: 20050131
  Transmission Date: 20050727
  Serious: Yes (Hospitalization)
  Sender: FDA-Public Use
  Company Number: 2005IM000029

PATIENT
  Age: 62 Year
  Sex: Male

DRUGS (2)
  1. ADVAFERON (A643_INTEFERON ALFACON-1) [Suspect]
     Indication: HEPATITIS C
     Dosage: 18 MU; QOD; SUBCUTANEOUS
     Route: 058
     Dates: start: 20041207, end: 20050114
  2. INDOMETHACIN [Suspect]
     Dosage: 25 MG; PRN; RECTAL
     Route: 054
     Dates: start: 20041207, end: 20050114

REACTIONS (1)
  - CONVULSION [None]
